FAERS Safety Report 13480758 (Version 3)
Quarter: 2017Q2

REPORT INFORMATION
  Report Type: Report from Study
  Country: US (occurrence: US)
  Receive Date: 20170424
  Receipt Date: 20170530
  Transmission Date: 20170830
  Serious: Yes (Other)
  Sender: FDA-Public Use
  Company Number: US-AMGEN-USASL2017038004

PATIENT
  Age: 50 Year
  Sex: Female

DRUGS (2)
  1. REPATHA [Suspect]
     Active Substance: EVOLOCUMAB
     Indication: HYPERCHOLESTEROLAEMIA
  2. REPATHA [Suspect]
     Active Substance: EVOLOCUMAB
     Indication: BLOOD CHOLESTEROL INCREASED
     Dosage: 140 MG/ML, Q2WK
     Route: 065
     Dates: start: 20170223

REACTIONS (14)
  - Alopecia [Recovering/Resolving]
  - Blood glucose abnormal [Recovering/Resolving]
  - Onychoclasis [Recovering/Resolving]
  - Onychalgia [Recovering/Resolving]
  - Injection site pain [Recovering/Resolving]
  - Injection site pruritus [Recovering/Resolving]
  - Influenza [Unknown]
  - Anxiety [Not Recovered/Not Resolved]
  - Depression [Not Recovered/Not Resolved]
  - Fungal infection [Recovered/Resolved]
  - Eye pain [Recovered/Resolved]
  - Headache [Recovering/Resolving]
  - Viral upper respiratory tract infection [Recovered/Resolved]
  - Onycholysis [Recovering/Resolving]

NARRATIVE: CASE EVENT DATE: 2017
